FAERS Safety Report 8371794-8 (Version None)
Quarter: 2012Q2

REPORT INFORMATION
  Report Type: 
  Country: None (occurrence: None)
  Receive Date: 20120518
  Receipt Date: 20120504
  Transmission Date: 20120825
  Serious: Yes (Hospitalization)
  Sender: FDA-Public Use
  Company Number: CN-ROCHE-1058687

PATIENT
  Sex: Male
  Weight: 77.5 kg

DRUGS (2)
  1. PEGASYS [Suspect]
     Indication: HEPATITIS B
     Dosage: DATE OF LAST DOSE PRIOR TO ABNORMAL LIVER FUNCTION- 10/APR/2012.
     Route: 025
     Dates: start: 20100720, end: 20120417
  2. PEGASYS [Suspect]
     Dates: start: 20120426

REACTIONS (3)
  - HEPATIC FUNCTION ABNORMAL [None]
  - HEPATITIS B [None]
  - LUNG INFECTION [None]
